FAERS Safety Report 12985001 (Version 2)
Quarter: 2016Q4

REPORT INFORMATION
  Report Type: Spontaneous
  Country: US (occurrence: US)
  Receive Date: 20161129
  Receipt Date: 20161129
  Transmission Date: 20170207
  Serious: No
  Sender: FDA-Public Use
  Company Number: US-SHEFFIELD PHARMACEUTICALS, LLC-1060212

PATIENT
  Sex: Female

DRUGS (1)
  1. DR. SHEFFIELD PSORIASIS MEDICATED MOISTURIZER [Suspect]
     Active Substance: SALICYLIC ACID
     Indication: PSORIASIS
     Route: 061
     Dates: start: 20160801, end: 20160901

REACTIONS (1)
  - Skin discolouration [Unknown]

NARRATIVE: CASE EVENT DATE: 20160801
